FAERS Safety Report 24963824 (Version 3)
Quarter: 2025Q3

REPORT INFORMATION
  Report Type: Report from Study
  Country: GB (occurrence: GB)
  Receive Date: 20250213
  Receipt Date: 20250902
  Transmission Date: 20251021
  Serious: Yes (Hospitalization, Other)
  Sender: TAKEDA
  Company Number: GB-TAKEDA-2025TUS013216

PATIENT
  Age: 32 Year
  Sex: Male

DRUGS (2)
  1. VEDOLIZUMAB [Suspect]
     Active Substance: VEDOLIZUMAB
     Indication: Colitis ulcerative
     Dosage: 108 MILLIGRAM, Q2WEEKS
     Dates: start: 202106
  2. VEDOLIZUMAB [Suspect]
     Active Substance: VEDOLIZUMAB

REACTIONS (9)
  - Colitis [Unknown]
  - Fall [Unknown]
  - Myocardial infarction [Unknown]
  - Blood pressure abnormal [Unknown]
  - Loss of consciousness [Unknown]
  - Blood pressure increased [Unknown]
  - Inappropriate schedule of product administration [Unknown]
  - Memory impairment [Unknown]
  - Injection site pain [Unknown]

NARRATIVE: CASE EVENT DATE: 20230214
